FAERS Safety Report 6109221-3 (Version None)
Quarter: 2009Q1

REPORT INFORMATION
  Report Type: 
  Country: None (occurrence: None)
  Receive Date: 20090310
  Receipt Date: 20090305
  Transmission Date: 20090719
  Serious: Yes (Life-Threatening, Other)
  Sender: FDA-Public Use
  Company Number: PHHY2009ZA07966

PATIENT
  Age: 80 Year
  Sex: Male

DRUGS (3)
  1. STALEVO 100 [Suspect]
     Dosage: 50 MG, BID
  2. STALEVO 100 [Suspect]
     Dosage: 2X50 MG FOUR TIMES DAILY
  3. ARICEPT [Concomitant]

REACTIONS (8)
  - APPARENT DEATH [None]
  - BEDRIDDEN [None]
  - CHOKING [None]
  - CYANOSIS [None]
  - DYSPHAGIA [None]
  - EYE ROLLING [None]
  - GENERAL PHYSICAL CONDITION ABNORMAL [None]
  - SPEECH DISORDER [None]
